FAERS Safety Report 17163823 (Version 1)
Quarter: 2019Q4

REPORT INFORMATION
  Report Type: Other
  Country: DE (occurrence: DE)
  Receive Date: 20191217
  Receipt Date: 20191217
  Transmission Date: 20200122
  Serious: Yes (Hospitalization, Other)
  Sender: FDA-Public Use
  Company Number: DE-DEXPHARM-20190971

PATIENT
  Age: 45 Year
  Sex: Male

DRUGS (6)
  1. L-THYROXIN [Concomitant]
     Active Substance: LEVOTHYROXINE SODIUM
     Indication: THYROID HORMONE REPLACEMENT THERAPY
     Dosage: 200 MICROGRAM/DAY
  2. LITHIUM. [Concomitant]
     Active Substance: LITHIUM
  3. VENLAFAXINE [Suspect]
     Active Substance: VENLAFAXINE HYDROCHLORIDE
     Indication: MAJOR DEPRESSION
     Dosage: 150 MG/DAY
  4. LORAZEPAM. [Concomitant]
     Active Substance: LORAZEPAM
     Indication: RELAXATION THERAPY
     Dosage: 0.5 MG 4 TIMES A DAY
  5. MIRTAZAPINE. [Concomitant]
     Active Substance: MIRTAZAPINE
  6. VENLAFAXINE [Suspect]
     Active Substance: VENLAFAXINE HYDROCHLORIDE
     Indication: MAJOR DEPRESSION
     Dosage: 225 MG/DAY

REACTIONS (5)
  - Anxiety [Recovered/Resolved]
  - Hyperhidrosis [Recovered/Resolved]
  - Feeling jittery [Recovered/Resolved]
  - Restlessness [Unknown]
  - Suicidal ideation [Recovered/Resolved]
